FAERS Safety Report 9526969 (Version 1)
Quarter: 2013Q3

REPORT INFORMATION
  Report Type: Spontaneous
  Country: US (occurrence: US)
  Receive Date: 20130916
  Receipt Date: 20130916
  Transmission Date: 20140515
  Serious: Yes (Other)
  Sender: FDA-Public Use
  Company Number: CHPA2013US014014

PATIENT
  Age: 70 Year
  Sex: Male

DRUGS (5)
  1. EXCEDRIN TENSION HEADACHE [Suspect]
     Indication: ARTHRALGIA
     Dosage: 1 DF, PRN
     Route: 048
     Dates: start: 2003
  2. EXCEDRIN TENSION HEADACHE [Suspect]
     Indication: ARTHRITIS
     Dosage: UNK, UNK
  3. EXCEDRIN EXTRA STRENGTH [Suspect]
     Indication: ARTHRALGIA
     Dosage: UNK, UNK
     Route: 048
  4. EXCEDRIN EXTRA STRENGTH [Suspect]
     Indication: HEADACHE
  5. FERROUS SULFATE [Concomitant]
     Indication: MINERAL SUPPLEMENTATION
     Dosage: UNK, UNK

REACTIONS (5)
  - Hypertension [Recovering/Resolving]
  - Underdose [Unknown]
  - Therapeutic response unexpected [Unknown]
  - Off label use [Unknown]
  - Wrong technique in drug usage process [Unknown]
